FAERS Safety Report 13650206 (Version 2)
Quarter: 2017Q4

REPORT INFORMATION
  Report Type: Report from Study
  Country: None (occurrence: BR)
  Receive Date: 20170614
  Receipt Date: 20171121
  Transmission Date: 20180320
  Serious: Yes (Hospitalization, Other)
  Sender: FDA-Public Use
  Company Number: BR-ABBVIE-17K-020-2002172-00

PATIENT
  Age: 68 Year
  Sex: Male
  Weight: 108 kg

DRUGS (3)
  1. PARACETAMOL [Concomitant]
     Active Substance: ACETAMINOPHEN
     Indication: PAIN
  2. DIPYRONE [Concomitant]
     Active Substance: DIPYRONE
     Indication: PAIN
  3. HUMIRA [Suspect]
     Active Substance: ADALIMUMAB
     Indication: RHEUMATOID ARTHRITIS
     Route: 058
     Dates: start: 20160108, end: 20170411

REACTIONS (17)
  - Gait disturbance [Unknown]
  - Post procedural complication [Unknown]
  - Prosthesis implantation [Unknown]
  - Incorrect route of drug administration [Unknown]
  - Anal haemorrhage [Unknown]
  - Varicose vein [Unknown]
  - Back pain [Unknown]
  - Gastric haemorrhage [Recovering/Resolving]
  - Vein disorder [Recovering/Resolving]
  - Hepatic cirrhosis [Not Recovered/Not Resolved]
  - Haematemesis [Recovered/Resolved]
  - Haematemesis [Recovered/Resolved]
  - Hepatic failure [Recovering/Resolving]
  - Asthenia [Unknown]
  - Hepatic haemorrhage [Recovering/Resolving]
  - Renal failure [Recovering/Resolving]
  - Diabetes mellitus [Recovering/Resolving]

NARRATIVE: CASE EVENT DATE: 20160108
